FAERS Safety Report 25243428 (Version 3)
Quarter: 2025Q2

REPORT INFORMATION
  Report Type: Report from Study
  Country: US (occurrence: US)
  Receive Date: 20250428
  Receipt Date: 20250514
  Transmission Date: 20250717
  Serious: No
  Sender: ACADIA PHARMACEUTICALS
  Company Number: US-ACADIA PHARMACEUTICALS INC.-ACA-2025-PIM-004718

PATIENT
  Sex: Male

DRUGS (3)
  1. NUPLAZID [Suspect]
     Active Substance: PIMAVANSERIN TARTRATE
     Indication: Parkinson^s disease psychosis
     Dosage: 34 MILLIGRAM, QD
     Route: 048
     Dates: start: 20241204, end: 202502
  2. SEROQUEL [Concomitant]
     Active Substance: QUETIAPINE FUMARATE
  3. ROPINIROLE [Concomitant]
     Active Substance: ROPINIROLE

REACTIONS (2)
  - Adverse drug reaction [Recovered/Resolved]
  - Drug ineffective [Unknown]
